FAERS Safety Report 12076079 (Version 2)
Quarter: 2016Q1

REPORT INFORMATION
  Report Type: Spontaneous
  Country: US (occurrence: US)
  Receive Date: 20160215
  Receipt Date: 20160307
  Transmission Date: 20160526
  Serious: Yes (Death, Hospitalization, Disabling, Other)
  Sender: FDA-Public Use
  Company Number: US-009507513-1602USA005468

PATIENT
  Age: 61 Year
  Sex: Male
  Weight: 55.2 kg

DRUGS (1)
  1. KEYTRUDA [Suspect]
     Active Substance: PEMBROLIZUMAB
     Indication: METASTATIC GASTRIC CANCER
     Dosage: 120 MG, UNK
     Route: 042
     Dates: start: 20151022, end: 20151203

REACTIONS (13)
  - Staphylococcal infection [Unknown]
  - Central venous catheterisation [Unknown]
  - Metastases to central nervous system [Recovered/Resolved]
  - Oesophageal stent insertion [Recovered/Resolved]
  - Flushing [Unknown]
  - Secretion discharge [Unknown]
  - Vomiting [Unknown]
  - Pain [Unknown]
  - Atelectasis [Unknown]
  - Metastatic gastric cancer [Fatal]
  - Weight decreased [Unknown]
  - Hiccups [Unknown]
  - Off label use [Unknown]

NARRATIVE: CASE EVENT DATE: 2015
